FAERS Safety Report 8680391 (Version 2)
Quarter: 2012Q4

REPORT INFORMATION
  Report Type: Spontaneous
  Country: IT (occurrence: None)
  Receive Date: 20120706
  Receipt Date: 20120816
  Transmission Date: 20130627
  Serious: Yes (Hospitalization)
  Sender: FDA-Public Use
  Company Number: 1336818

PATIENT
  Age: 76 Year
  Sex: Male

DRUGS (12)
  1. FLUDARABINE PHOSPHATE [Suspect]
     Indication: CHRONIC LYMPHOCYTIC LEUKEMIA
     Dosage: 38 MG MILLIGRAM(S), UNKNOWN, INTRAVENOUS (NOT OTHERWISE SPECIFIED)
     Route: 042
     Dates: start: 20120109, end: 20120111
  2. MABCAMPATH [Suspect]
     Indication: CHRONIC LYMPHOCYTIC LEUKEMIA
     Dosage: 20 MG MILLIGRAM(S), UNKNOWN, SUBCUTANEOUS
     Route: 058
     Dates: start: 20120109, end: 20120111
  3. CYCLOPHOSPHAMIDE [Suspect]
     Indication: CHRONIC LYMPHOCYTIC LEUKEMIA
     Dosage: 285 MG MILLIGRAM(S), UNKNOWN, INTRAVENOUS (NOT OTHERWISE SPECIFIED)
     Route: 042
     Dates: start: 20120109, end: 20120111
  4. DECADRON [Suspect]
     Indication: PROPHYLAXIS
     Dosage: 40 MG MILLIGRAM(S), UNKNOWN, INTRAVENOUS (NOT OTHERWISE SPECIFIED)
     Route: 042
     Dates: start: 20120117, end: 20120117
  5. DEXAMETHASONE SODIUM PHOSPHATE [Suspect]
     Indication: PROPHYLAXIS
     Dosage: 40 MG MILLIGRAM(S), UNKNOWN, INTRAMUSCULAR
     Route: 030
     Dates: start: 20120118, end: 20120120
  6. ACYCLOVIR [Concomitant]
  7. OMEPRAZOLE SODIUM [Concomitant]
  8. FLECAINIDE ACETATE [Concomitant]
  9. (FOLINA /00024201/) [Concomitant]
  10. GRANULOKINE [Concomitant]
  11. (IDROPLURIVIT) [Concomitant]
  12. LEVOFLOXACIN [Concomitant]

REACTIONS (4)
  - Abdominal pain upper [None]
  - Cytomegalovirus infection [None]
  - Oesophageal candidiasis [None]
  - Oral candidiasis [None]
